FAERS Safety Report 8036801-0 (Version None)
Quarter: 2012Q1

REPORT INFORMATION
  Report Type: 
  Country: None (occurrence: None)
  Receive Date: 20120111
  Receipt Date: 20120104
  Transmission Date: 20120608
  Serious: Yes (Hospitalization)
  Sender: FDA-Public Use
  Company Number: FR-ROCHE-1027631

PATIENT
  Sex: Female

DRUGS (17)
  1. ACETAMINOPHEN [Concomitant]
  2. BACTRIM [Suspect]
     Indication: ANTIBIOTIC PROPHYLAXIS
     Route: 048
     Dates: start: 20110922, end: 20111205
  3. NOXAFIL [Suspect]
     Indication: ANTIFUNGAL PROPHYLAXIS
     Route: 048
     Dates: start: 20110922, end: 20111205
  4. CALCIUM ACETATE [Concomitant]
  5. PREVISCAN (FRANCE) [Concomitant]
  6. PHENOXYMETHYL PENICILLIN [Concomitant]
     Dates: end: 20111205
  7. VALSARTAN [Concomitant]
     Dates: end: 20111205
  8. PREDNISONE TAB [Concomitant]
  9. NEXIUM [Concomitant]
  10. MABTHERA [Suspect]
     Indication: ANTISYNTHETASE SYNDROME
     Route: 042
     Dates: start: 20111115, end: 20111201
  11. KAYEXALATE [Concomitant]
  12. SPECIAFOLDINE [Concomitant]
  13. NEUPOGEN [Concomitant]
     Dates: start: 20111205
  14. POLARAMINE [Concomitant]
  15. FOLIC ACID [Concomitant]
     Dates: start: 20111205
  16. ALDACTONE [Concomitant]
  17. PAROXETINE HCL [Concomitant]

REACTIONS (1)
  - AGRANULOCYTOSIS [None]
